FAERS Safety Report 6537889-6 (Version None)
Quarter: 2010Q1

REPORT INFORMATION
  Report Type: 
  Country: None (occurrence: None)
  Receive Date: 20100114
  Receipt Date: 20100106
  Transmission Date: 20100710
  Serious: Yes (Other)
  Sender: FDA-Public Use
  Company Number: GXKR2010GB00547

PATIENT
  Age: 67 Year
  Sex: Male

DRUGS (6)
  1. OMEPRAZOLE (NGX) [Suspect]
     Dosage: UNK
     Route: 048
     Dates: start: 20020913
  2. ALENDRONIC ACID [Suspect]
     Dosage: UNK
     Route: 065
     Dates: start: 20020913
  3. AZATHIOPRINE [Suspect]
     Dosage: UNK
     Route: 065
     Dates: start: 20020913
  4. NULYTELY [Suspect]
     Indication: CONSTIPATION
     Route: 065
  5. PREDNISOLONE [Suspect]
     Dosage: AS NECESSARY
     Dates: end: 20080417
  6. TEGRETOL [Suspect]
     Dosage: UNK
     Route: 048
     Dates: start: 20030108

REACTIONS (4)
  - CEREBROVASCULAR ACCIDENT [None]
  - CIRCULATORY COLLAPSE [None]
  - DYSSTASIA [None]
  - HYPOTONIA [None]
